FAERS Safety Report 15415097 (Version 1)
Quarter: 2018Q3

REPORT INFORMATION
  Report Type: Spontaneous
  Country: RU (occurrence: RU)
  Receive Date: 20180921
  Receipt Date: 20180921
  Transmission Date: 20181010
  Serious: Yes (Life-Threatening, Other)
  Sender: FDA-Public Use
  Company Number: RU-SAKK-2018SA215436AA

PATIENT
  Age: 85 Year
  Sex: Female
  Weight: 76 kg

DRUGS (4)
  1. TOUJEO [Suspect]
     Active Substance: INSULIN GLARGINE
     Dosage: 28 IU, QD
     Route: 058
     Dates: start: 20180711, end: 20180725
  2. SOMNOL [ZOPICLONE] [Concomitant]
     Dosage: UNK
     Dates: start: 20180410
  3. VILDAGLIPTIN [Concomitant]
     Active Substance: VILDAGLIPTIN
     Indication: TYPE 2 DIABETES MELLITUS
     Dosage: UNK
     Dates: start: 20180410
  4. CARVEDILOL. [Concomitant]
     Active Substance: CARVEDILOL
     Dosage: UNK
     Dates: start: 20180410

REACTIONS (5)
  - Asthenia [Recovering/Resolving]
  - Malaise [Recovering/Resolving]
  - Blood pressure increased [Recovering/Resolving]
  - Hypoglycaemia [Recovering/Resolving]
  - Dyspnoea [Recovering/Resolving]

NARRATIVE: CASE EVENT DATE: 20180711
